FAERS Safety Report 23606129 (Version 1)
Quarter: 2024Q1

REPORT INFORMATION
  Report Type: Report from Study
  Country: US (occurrence: US)
  Receive Date: 20240307
  Receipt Date: 20240307
  Transmission Date: 20240409
  Serious: Yes (Other)
  Sender: FDA-Public Use
  Company Number: US-Merck Healthcare KGaA-2024010202

PATIENT
  Sex: Female

DRUGS (4)
  1. MAVENCLAD [Suspect]
     Active Substance: CLADRIBINE
     Indication: Multiple sclerosis
     Dosage: YEAR ONE MONTH ONE THERAPY
     Route: 048
     Dates: start: 20191006
  2. MAVENCLAD [Suspect]
     Active Substance: CLADRIBINE
     Dosage: YEAR ONE MONTH TWO THERAPY
     Route: 048
     Dates: start: 201911
  3. MAVENCLAD [Suspect]
     Active Substance: CLADRIBINE
     Dosage: (REPEATED) YEAR ONE MONTH ONE THERAPY
     Route: 048
     Dates: start: 20230101
  4. MAVENCLAD [Suspect]
     Active Substance: CLADRIBINE
     Dosage: (REPEATED) YEAR ONE MONTH TWO THERAPY
     Route: 048

REACTIONS (4)
  - Peritoneal cyst [Unknown]
  - Ovarian cyst [Unknown]
  - Cervical dysplasia [Recovering/Resolving]
  - Acrochordon [Unknown]
